FAERS Safety Report 6337127-3 (Version None)
Quarter: 2009Q3

REPORT INFORMATION
  Report Type: 
  Country: None (occurrence: None)
  Receive Date: 20090831
  Receipt Date: 20090806
  Transmission Date: 20100115
  Serious: Yes (Life-Threatening)
  Sender: FDA-Public Use
  Company Number: APP200900530

PATIENT
  Age: 79 Year
  Sex: Female

DRUGS (17)
  1. DIPRIVAN [Suspect]
     Indication: FEMUR FRACTURE
     Dosage: 150 MG, ONCE, INTRAVENOUS
     Route: 042
     Dates: start: 20090729, end: 20090729
  2. MEPRONIZINE (CLINDORM) [Suspect]
     Indication: FEMUR FRACTURE
  3. FENTANYL-100 [Concomitant]
  4. MORPHINE [Concomitant]
  5. SUFENTA PRESERVATIVE FREE [Concomitant]
  6. VALIUM [Concomitant]
  7. PAROXETINE HYDROCHLORIDE [Concomitant]
  8. TOLVON (MIANSERIN HYDROCHLORIDE) [Concomitant]
  9. TORECAN [Concomitant]
  10. TRAMAL [Concomitant]
  11. INDERAL [Concomitant]
  12. SELIPRAN (PRAVASTATIN SODIUM) [Concomitant]
  13. BUSCAPAN (HYOSCINE BUTYLBROMIDE) [Concomitant]
  14. LEVOTHYROXINE SODIUM [Concomitant]
  15. DIOVAN HCT [Concomitant]
  16. ASPIRIN [Concomitant]
  17. CONDROSULF (CHONDROITIN SULFATE SODIUM) [Concomitant]

REACTIONS (3)
  - COMA [None]
  - RESPIRATORY ACIDOSIS [None]
  - RESPIRATORY FAILURE [None]
